FAERS Safety Report 9938054 (Version 2)
Quarter: 2014Q1

REPORT INFORMATION
  Report Type: Other
  Country: IT (occurrence: IT)
  Receive Date: 20140303
  Receipt Date: 20140303
  Transmission Date: 20141002
  Serious: Yes (Hospitalization)
  Sender: FDA-Public Use
  Company Number: IT-SUN PHARMACEUTICAL INDUSTRIES LTD-2014SUN00394

PATIENT
  Age: 67 Year
  Sex: Female

DRUGS (13)
  1. OXALIPLATINO SUN 5 MG/ML, CONCENTRATO PER SOLUZIONE PER INFUSIONE [Suspect]
     Indication: RECTOSIGMOID CANCER
     Dosage: 200 MG, CYCLIC
     Route: 042
     Dates: start: 20131203, end: 20140122
  2. XELODA [Suspect]
     Indication: RECTOSIGMOID CANCER
     Dosage: 2500 MG, QD
     Route: 048
     Dates: start: 20131203, end: 20140122
  3. RETACRIT [Concomitant]
  4. CARDIOASPIRIN [Concomitant]
  5. DUROGESIC [Concomitant]
     Dosage: 75 MCG, UNK
  6. ANTRA [Concomitant]
  7. CARDICOR [Concomitant]
  8. NITRODERM TTS [Concomitant]
  9. SOLDASEM 0.2% [Concomitant]
  10. ZYRTEC [Concomitant]
  11. FERLIXIT [Concomitant]
  12. ACICLOVIR [Concomitant]
  13. ALBUMINA [Concomitant]

REACTIONS (7)
  - Cardiac fibrillation [Recovered/Resolved]
  - Respiratory failure [Recovered/Resolved]
  - Anaemia [Recovering/Resolving]
  - Chest discomfort [Recovered/Resolved]
  - Diarrhoea [Recovering/Resolving]
  - Neutropenia [Recovering/Resolving]
  - Vomiting [Recovered/Resolved]
